FAERS Safety Report 4438352-9 (Version None)
Quarter: 2004Q3

REPORT INFORMATION
  Report Type: 
  Country: None (occurrence: None)
  Receive Date: 20040831
  Receipt Date: 20040726
  Transmission Date: 20050211
  Serious: No
  Sender: FDA-Public Use
  Company Number: US-GLAXOSMITHKLINE-A0519704A

PATIENT
  Age: 49 Year
  Sex: Female

DRUGS (6)
  1. WELLBUTRIN XL [Suspect]
     Indication: ANXIETY
     Dosage: 300MG PER DAY
     Route: 048
  2. WELLBUTRIN SR [Suspect]
     Indication: DRUG USE FOR UNKNOWN INDICATION
     Route: 048
  3. ACTONEL [Concomitant]
  4. NEXIUM [Concomitant]
  5. ORAL CONTRACEPTIVES [Concomitant]
  6. ATIVAN [Concomitant]

REACTIONS (4)
  - ABNORMAL DREAMS [None]
  - MUSCLE CRAMP [None]
  - MUSCLE TWITCHING [None]
  - MYALGIA [None]
